FAERS Safety Report 8948351 (Version 1)
Quarter: 2012Q4

REPORT INFORMATION
  Report Type: Spontaneous
  Country: US (occurrence: None)
  Receive Date: 20120928
  Receipt Date: 20120928
  Transmission Date: 20130627
  Serious: Yes (Hospitalization)
  Sender: FDA-Public Use
  Company Number: None

PATIENT
  Age: 53 Year
  Sex: Male
  Weight: 116.8 kg

DRUGS (3)
  1. SEPTRA [Suspect]
     Dosage: PO
RECENT
     Route: 048
  2. KEFLEX [Concomitant]
  3. BENADRYL [Concomitant]

REACTIONS (7)
  - Drug hypersensitivity [None]
  - Periorbital oedema [None]
  - Staphylococcal infection [None]
  - Cellulitis [None]
  - Pruritus [None]
  - Rash maculo-papular [None]
  - Angioedema [None]
